FAERS Safety Report 4650349-2 (Version None)
Quarter: 2005Q2

REPORT INFORMATION
  Report Type: 
  Country: None (occurrence: None)
  Receive Date: 20050428
  Receipt Date: 20050415
  Transmission Date: 20051028
  Serious: Yes (Hospitalization, Other)
  Sender: FDA-Public Use
  Company Number: 2005060644

PATIENT
  Age: 84 Year
  Sex: Female
  Weight: 56.6996 kg

DRUGS (12)
  1. BEXTRA [Suspect]
     Indication: ARTHRALGIA
     Dosage: 10 MG (10 MG, 1 IN 1 D) ORAL
     Route: 048
     Dates: start: 20030101, end: 20041101
  2. DIPYRIDAMOLE [Concomitant]
  3. LEVOTHYROXINE SODIUM [Concomitant]
  4. DIGOXIN [Concomitant]
  5. FEXOFENADINE HYDROCHLORIDE [Concomitant]
  6. CETIRIZINE HCL [Concomitant]
  7. ACETYL SALICYLIC ACID USP BAT [Concomitant]
  8. CALCIUM GLUCONATE [Concomitant]
  9. MULTIVITAMINS (ASCORBIC ACID, ERGOCALCERIFOL, FOLIC ACID, NICOTINAMIDE [Concomitant]
  10. POLYCARBOPHIL CALCIUM [Concomitant]
  11. ALL OTHER THERAPEUTIC PRODUCTS [Concomitant]
  12. SUNSCREEN (BUTYL METHOXYDIBENZOYLMETHANE, OCTINOXATE) [Concomitant]

REACTIONS (6)
  - DERMATITIS [None]
  - HIP ARTHROPLASTY [None]
  - IMMUNE SYSTEM DISORDER [None]
  - PALPITATIONS [None]
  - PHOTOSENSITIVITY REACTION [None]
  - SYSTEMIC LUPUS ERYTHEMATOSUS [None]
